FAERS Safety Report 5498911-1 (Version None)
Quarter: 2007Q4

REPORT INFORMATION
  Report Type: 
  Country: None (occurrence: None)
  Receive Date: 20071026
  Receipt Date: 20070807
  Transmission Date: 20080405
  Serious: No
  Sender: FDA-Public Use
  Company Number: A0668652A

PATIENT
  Age: 65 Year
  Sex: Female

DRUGS (6)
  1. ADVAIR DISKUS 100/50 [Suspect]
     Indication: ASTHMA
     Route: 055
     Dates: start: 20050101
  2. ANTIHYPERTENSIVES [Concomitant]
  3. SINGULAIR [Concomitant]
  4. ASPIRIN [Concomitant]
  5. CHOLESTEROL [Concomitant]
  6. UNKNOWN MEDICATION [Concomitant]
     Indication: GASTRIC DISORDER

REACTIONS (3)
  - LUNG DISORDER [None]
  - MOUTH ULCERATION [None]
  - TREATMENT NONCOMPLIANCE [None]
